FAERS Safety Report 18588105 (Version 3)
Quarter: 2020Q4

REPORT INFORMATION
  Report Type: Report from Study
  Country: DE (occurrence: DE)
  Receive Date: 20201207
  Receipt Date: 20201218
  Transmission Date: 20210114
  Serious: Yes (Hospitalization)
  Sender: FDA-Public Use
  Company Number: DE-ZOGENIX INTERNATIONAL LIMITED, A WHOLLY OWNED SUBSIDIARY OF ZOGENIX, INC.-2020ZX000045

PATIENT
  Age: 17 Year
  Sex: Female
  Weight: 73.6 kg

DRUGS (18)
  1. THYROXINE [Concomitant]
     Active Substance: LEVOTHYROXINE
     Indication: PRODUCT USED FOR UNKNOWN INDICATION
     Route: 065
  2. FENFLURAMINE. [Suspect]
     Active Substance: FENFLURAMINE
     Route: 048
  3. VITAMIN D [Concomitant]
     Active Substance: VITAMIN D NOS
     Indication: PRODUCT USED FOR UNKNOWN INDICATION
     Route: 065
  4. FENFLURAMINE. [Suspect]
     Active Substance: FENFLURAMINE
     Route: 048
     Dates: start: 20201023
  5. MAGNESIUM [Concomitant]
     Active Substance: MAGNESIUM
     Indication: PRODUCT USED FOR UNKNOWN INDICATION
     Route: 065
  6. FENFLURAMINE. [Suspect]
     Active Substance: FENFLURAMINE
     Route: 048
     Dates: start: 20200915, end: 20201022
  7. VALPROATE [Concomitant]
     Active Substance: VALPROIC ACID
     Indication: PRODUCT USED FOR UNKNOWN INDICATION
     Route: 065
  8. BROMIDE [Concomitant]
     Dosage: DOSE REDUCED. 1275 MG - 0 - 850 MG
     Route: 065
     Dates: start: 20200831, end: 20200907
  9. BROMIDE [Concomitant]
     Dosage: 425 MG - 0 - 850 MG
     Route: 065
     Dates: start: 20200915, end: 20201023
  10. FENFLURAMINE. [Suspect]
     Active Substance: FENFLURAMINE
     Route: 048
     Dates: end: 20200820
  11. VALPROATE [Concomitant]
     Active Substance: VALPROIC ACID
     Dosage: DOSE REDUCED
     Route: 065
  12. FENFLURAMINE. [Suspect]
     Active Substance: FENFLURAMINE
     Indication: SEVERE MYOCLONIC EPILEPSY OF INFANCY
     Route: 048
     Dates: start: 20200803
  13. FENFLURAMINE. [Suspect]
     Active Substance: FENFLURAMINE
     Route: 048
  14. FENFLURAMINE. [Suspect]
     Active Substance: FENFLURAMINE
     Route: 048
     Dates: start: 20200821, end: 20200914
  15. LEVETIRACETAM. [Concomitant]
     Active Substance: LEVETIRACETAM
     Indication: PRODUCT USED FOR UNKNOWN INDICATION
     Route: 065
  16. FENFLURAMINE. [Suspect]
     Active Substance: FENFLURAMINE
     Route: 048
  17. BROMIDE [Concomitant]
     Indication: PRODUCT USED FOR UNKNOWN INDICATION
     Dosage: 1275 MG - 0 - 1900 MG
     Route: 065
     Dates: end: 20200830
  18. BROMIDE [Concomitant]
     Dosage: 850 MG - 0 - 850 MG
     Route: 065
     Dates: start: 20200908, end: 20200914

REACTIONS (3)
  - Toxicity to various agents [Recovered/Resolved]
  - Seizure [Recovered/Resolved]
  - Blood bromide increased [Recovered/Resolved]

NARRATIVE: CASE EVENT DATE: 20201110
